FAERS Safety Report 7476091-0 (Version None)
Quarter: 2011Q2

REPORT INFORMATION
  Report Type: 
  Country: None (occurrence: None)
  Receive Date: 20110512
  Receipt Date: 20110510
  Transmission Date: 20111010
  Serious: Yes (Hospitalization)
  Sender: FDA-Public Use
  Company Number: US-BRISTOL-MYERS SQUIBB COMPANY-15339294

PATIENT
  Age: 83 Year
  Sex: Male

DRUGS (13)
  1. RANITIDINE [Concomitant]
     Dosage: AT BED TIME
     Route: 048
  2. ALLOPURINOL [Concomitant]
     Route: 048
  3. ATENOLOL [Concomitant]
     Route: 048
  4. RESVERATROL [Concomitant]
     Route: 048
  5. PREDNISONE [Concomitant]
     Dosage: 60MG IN THE MNG AND 20MG IN THE EVENING
     Route: 048
  6. ACETYL SALICYLIC ACID USP BAT [Concomitant]
     Dosage: EVENY OTHER DAY
     Route: 048
  7. FUROSEMIDE [Concomitant]
     Route: 048
  8. LOVASTATIN [Concomitant]
     Dosage: AT BED TIME
     Route: 048
  9. FISH OIL [Concomitant]
  10. IMODIUM [Concomitant]
  11. YERVOY [Suspect]
     Indication: MALIGNANT MELANOMA
     Dosage: 270MG:21JUL-21JUL10 264MG:11AUG-11AUG10 267MG:22SEP-22SEP10 NO.OF COURSES:1
     Route: 042
     Dates: start: 20100721, end: 20100922
  12. TURMERIC [Concomitant]
     Route: 048
  13. CENTRUM SILVER [Concomitant]

REACTIONS (3)
  - PNEUMONIA [None]
  - DIARRHOEA [None]
  - PYREXIA [None]
